FAERS Safety Report 9220696 (Version 2)
Quarter: 2013Q2

REPORT INFORMATION
  Report Type: Spontaneous
  Country: US (occurrence: US)
  Receive Date: 20130409
  Receipt Date: 20130620
  Transmission Date: 20140414
  Serious: Yes (Hospitalization)
  Sender: FDA-Public Use
  Company Number: US-ELI_LILLY_AND_COMPANY-US201303009727

PATIENT
  Sex: Female

DRUGS (11)
  1. CYMBALTA [Suspect]
     Indication: DEPRESSION
     Dosage: 60 MG, UNK
  2. CYMBALTA [Suspect]
     Dosage: 120 MG, UNK
     Dates: start: 2008, end: 201302
  3. CYMBALTA [Suspect]
     Dosage: 40 MG, UNK
  4. GABAPENTIN [Concomitant]
     Dosage: 200 MG, QID
  5. LISINOPRIL [Concomitant]
     Dosage: 10 MG, QD
  6. CLOZAPINE [Concomitant]
  7. LORAZEPAM [Concomitant]
     Dosage: UNK, QID
  8. RESTORIL [Concomitant]
     Dosage: 30 MG, EACH EVENING
  9. PROPRANOLOL [Concomitant]
     Dosage: UNK, QID
  10. RISPERDAL [Concomitant]
     Dosage: UNK, QID
  11. PEPCID [Concomitant]
     Dosage: UNK, QD

REACTIONS (11)
  - Suicidal ideation [Recovering/Resolving]
  - Depressed mood [Recovering/Resolving]
  - Bipolar disorder [Recovering/Resolving]
  - Post-traumatic stress disorder [Recovering/Resolving]
  - Panic attack [Recovering/Resolving]
  - Drug abuse [Recovering/Resolving]
  - Restless legs syndrome [Unknown]
  - Impaired driving ability [Unknown]
  - Insomnia [Unknown]
  - Fatigue [Unknown]
  - Drug ineffective [Recovered/Resolved]
